FAERS Safety Report 4534029-X (Version None)
Quarter: 2004Q4

REPORT INFORMATION
  Report Type: 
  Country: None (occurrence: None)
  Receive Date: 20041220
  Receipt Date: 20041220
  Transmission Date: 20050328
  Serious: Yes (Death)
  Sender: FDA-Public Use
  Company Number: None

PATIENT
  Sex: Female
  Weight: 49.8957 kg

DRUGS (1)
  1. PTU    NOT KNOWN   NOT KNOWN [Suspect]
     Indication: HYPERTHYROIDISM
     Dates: start: 20031001, end: 20041204

REACTIONS (14)
  - ACUTE RESPIRATORY DISTRESS SYNDROME [None]
  - AGRANULOCYTOSIS [None]
  - ANURIA [None]
  - BRADYCARDIA [None]
  - BRAIN DEATH [None]
  - CARDIAC ARREST [None]
  - CEREBRAL ISCHAEMIA [None]
  - DIALYSIS [None]
  - GENERAL PHYSICAL HEALTH DETERIORATION [None]
  - HYPOTENSION [None]
  - HYPOXIA [None]
  - LEUKOPENIA [None]
  - SINUS ARREST [None]
  - VENTRICULAR FIBRILLATION [None]
